FAERS Safety Report 21815768 (Version 1)
Quarter: 2023Q1

REPORT INFORMATION
  Report Type: Spontaneous
  Country: US (occurrence: None)
  Receive Date: 20230103
  Receipt Date: 20230103
  Transmission Date: 20230417
  Serious: Yes (Death)
  Sender: FDA-Public Use
  Company Number: None

PATIENT
  Age: 96 Year
  Sex: Male
  Weight: 42.64 kg

DRUGS (13)
  1. ERLEADA [Suspect]
     Active Substance: APALUTAMIDE
     Indication: Prostate cancer
     Dosage: FREQUENCY : DAILY;?
     Route: 048
     Dates: start: 20220430
  2. ATENOLOL [Concomitant]
     Active Substance: ATENOLOL
  3. CALCIUM [Concomitant]
     Active Substance: CALCIUM
  4. ELIQUIS [Concomitant]
  5. FERROUS SULFATE [Concomitant]
  6. FUROSEMIDE [Concomitant]
  7. GLIPIZIDE [Concomitant]
  8. IRON SUPPLEMENT [Concomitant]
  9. MULTIVITAMIN [Concomitant]
  10. OMEPRAZOLE [Concomitant]
  11. SIMVASTATIN [Concomitant]
  12. TYLENOL 8 HOUR ARTHRITIS PAIN [Concomitant]
  13. VITAMIN D3 [Concomitant]

REACTIONS (1)
  - Death [None]

NARRATIVE: CASE EVENT DATE: 20221230
